FAERS Safety Report 6194295-4 (Version None)
Quarter: 2009Q2

REPORT INFORMATION
  Report Type: 
  Country: None (occurrence: None)
  Receive Date: 20090519
  Receipt Date: 20090514
  Transmission Date: 20091009
  Serious: Yes (Life-Threatening)
  Sender: FDA-Public Use
  Company Number: FR-BRISTOL-MYERS SQUIBB COMPANY-14625107

PATIENT
  Age: 77 Year
  Sex: Female

DRUGS (1)
  1. HYDREA [Suspect]
     Indication: ESSENTIAL THROMBOCYTHAEMIA
     Dates: start: 20080601, end: 20090326

REACTIONS (1)
  - INTERSTITIAL LUNG DISEASE [None]
